FAERS Safety Report 5507507-4 (Version None)
Quarter: 2007Q4

REPORT INFORMATION
  Report Type: 
  Country: None (occurrence: None)
  Receive Date: 20071106
  Receipt Date: 20071022
  Transmission Date: 20080405
  Serious: Yes (Hospitalization)
  Sender: FDA-Public Use
  Company Number: US-ELI_LILLY_AND_COMPANY-US200710005495

PATIENT
  Sex: Female

DRUGS (12)
  1. PEMETREXED [Suspect]
     Indication: NON-SMALL CELL LUNG CANCER
     Dosage: 375 MG, Q 21 D
     Route: 042
     Dates: start: 20070720
  2. FOLIC ACID [Concomitant]
     Indication: SUPPLEMENTATION THERAPY
     Dates: start: 20070616
  3. VITAMIN B-12 [Concomitant]
     Indication: SUPPLEMENTATION THERAPY
     Dates: start: 20070616
  4. DEXAMETHASONE [Concomitant]
     Indication: PREMEDICATION
     Dates: start: 20070616
  5. NU-IRON [Concomitant]
     Indication: SUPPLEMENTATION THERAPY
     Dates: start: 20070108
  6. ZOCOR [Concomitant]
     Indication: BLOOD CHOLESTEROL INCREASED
     Dates: start: 20070108
  7. XANAX [Concomitant]
     Indication: ANXIETY
     Dates: start: 20070108
  8. SYNTHROID [Concomitant]
     Indication: HYPOTHYROIDISM
     Dates: start: 20070108
  9. MULTI-VITAMIN [Concomitant]
     Indication: SUPPLEMENTATION THERAPY
  10. FENTANYL [Concomitant]
     Indication: PAIN
     Dates: start: 20070801
  11. NEURONTIN [Concomitant]
     Indication: PAIN
     Dates: start: 20070108
  12. DARVOCET [Concomitant]
     Indication: PAIN
     Dates: start: 20070108

REACTIONS (1)
  - SEPSIS [None]
